FAERS Safety Report 15066643 (Version 2)
Quarter: 2018Q4

REPORT INFORMATION
  Report Type: Spontaneous
  Country: IT (occurrence: IT)
  Receive Date: 20180626
  Receipt Date: 20181109
  Transmission Date: 20190204
  Serious: Yes (Hospitalization)
  Sender: FDA-Public Use
  Company Number: PHHY2018IT024058

PATIENT
  Sex: Male

DRUGS (5)
  1. MYCOPHENOLATE MOFETIL. [Suspect]
     Active Substance: MYCOPHENOLATE MOFETIL
     Indication: IMMUNOSUPPRESSANT DRUG THERAPY
  2. RIBAVIRIN. [Suspect]
     Active Substance: RIBAVIRIN
     Indication: NEPHROTIC SYNDROME
     Dosage: 200 MG, X 2 DAYS
     Route: 042
  3. MYCOPHENOLATE MOFETIL. [Suspect]
     Active Substance: MYCOPHENOLATE MOFETIL
     Indication: NEPHROTIC SYNDROME
     Dosage: 1500 MG, QD
     Route: 042
  4. RIBAVIRIN. [Suspect]
     Active Substance: RIBAVIRIN
     Indication: IMMUNOSUPPRESSANT DRUG THERAPY
  5. RIBAVIRIN. [Suspect]
     Active Substance: RIBAVIRIN
     Indication: IMMUNOSUPPRESSANT DRUG THERAPY

REACTIONS (1)
  - Cholangitis acute [Unknown]
